FAERS Safety Report 10307624 (Version 3)
Quarter: 2014Q3

REPORT INFORMATION
  Report Type: Report from Study
  Country: US (occurrence: US)
  Receive Date: 20140716
  Receipt Date: 20140922
  Transmission Date: 20150326
  Serious: Yes (Hospitalization)
  Sender: FDA-Public Use
  Company Number: US-SA-2014SA092410

PATIENT
  Age: 56 Year
  Sex: Female

DRUGS (2)
  1. INSULIN, REGULAR [Concomitant]
     Active Substance: INSULIN NOS
  2. LANTUS [Suspect]
     Active Substance: INSULIN GLARGINE
     Indication: DIABETES MELLITUS
     Route: 065
     Dates: start: 2009

REACTIONS (2)
  - Transfusion [Unknown]
  - Dialysis [Unknown]
